FAERS Safety Report 23171124 (Version 1)
Quarter: 2023Q4

REPORT INFORMATION
  Report Type: Spontaneous
  Country: US (occurrence: US)
  Receive Date: 20231110
  Receipt Date: 20231110
  Transmission Date: 20240110
  Serious: Yes (Death, Hospitalization, Other)
  Sender: FDA-Public Use
  Company Number: US-SA-2023SA349100

PATIENT
  Age: 73 Year
  Sex: Male

DRUGS (1)
  1. HYDROCORTISONE [Suspect]
     Active Substance: HYDROCORTISONE
     Indication: Addison^s disease
     Dosage: UNK

REACTIONS (17)
  - Respiratory failure [Fatal]
  - COVID-19 [Fatal]
  - Dyspnoea [Fatal]
  - Arthritis infective [Recovering/Resolving]
  - Histoplasmosis [Recovering/Resolving]
  - Infection reactivation [Recovering/Resolving]
  - Pain in extremity [Recovering/Resolving]
  - Peripheral swelling [Recovering/Resolving]
  - Hand fracture [Recovering/Resolving]
  - Bone demineralisation [Recovering/Resolving]
  - Resorption bone increased [Recovering/Resolving]
  - Tenosynovitis [Recovering/Resolving]
  - Inflammation [Recovering/Resolving]
  - Granuloma [Recovering/Resolving]
  - Skin ulcer [Recovering/Resolving]
  - Skin weeping [Recovering/Resolving]
  - Scab [Recovering/Resolving]
